FAERS Safety Report 8783435 (Version 1)
Quarter: 2012Q4

REPORT INFORMATION
  Report Type: 
  Country: NZ (occurrence: NZ)
  Receive Date: 20120913
  Receipt Date: 20120913
  Transmission Date: 20130627
  Serious: Yes (Other)
  Sender: FDA-Public Use
  Company Number: NZ-BAYER-2012-092380

PATIENT
  Age: 55 Year
  Sex: Male

DRUGS (2)
  1. SORAFENIB (RAF KINASE INHIBITOR) [Suspect]
     Indication: RENAL CELL CARCINOMA RECURRENT
     Dosage: 400 mg, BID
     Route: 048
     Dates: start: 200803, end: 200811
  2. SORAFENIB (RAF KINASE INHIBITOR) [Suspect]
     Indication: RENAL CELL CARCINOMA RECURRENT
     Dosage: 400 mg, QD
     Route: 048
     Dates: start: 200811, end: 200901

REACTIONS (8)
  - Palmar-plantar erythrodysaesthesia syndrome [None]
  - Hypertension [None]
  - Chest pain [None]
  - Troponin T increased [None]
  - Gastrointestinal haemorrhage [None]
  - Metastatic renal cell carcinoma [None]
  - Metastases to lung [None]
  - Metastases to gastrointestinal tract [None]
